FAERS Safety Report 9500806 (Version 1)
Quarter: 2013Q1

REPORT INFORMATION
  Report Type: Spontaneous
  Country: US (occurrence: None)
  Receive Date: 20130110
  Receipt Date: 20130110
  Transmission Date: 20140127
  Serious: Yes (Other)
  Sender: FDA-Public Use
  Company Number: 1216244

PATIENT
  Age: 50 Year
  Sex: Female
  Weight: 89.55 kg

DRUGS (2)
  1. MEPERIDINE HCL [Suspect]
     Indication: PRODUCT USED FOR UNKNOWN INDICATION
     Dosage: 25 MG, X1 (UNKNOWN) INTRAVENOUS BOLUS
     Route: 040
     Dates: start: 20120302, end: 20120302
  2. SODIUM CHLORIDE INJ (SODIUM CHLORIDE) [Concomitant]

REACTIONS (1)
  - Injection site urticaria [None]
